FAERS Safety Report 6708643-7 (Version None)
Quarter: 2010Q2

REPORT INFORMATION
  Report Type: 
  Country: None (occurrence: None)
  Receive Date: 20100503
  Receipt Date: 20100429
  Transmission Date: 20101027
  Serious: Yes (Hospitalization)
  Sender: FDA-Public Use
  Company Number: SE-ROCHE-696139

PATIENT
  Sex: Male

DRUGS (7)
  1. XELODA [Suspect]
     Route: 065
     Dates: end: 20100404
  2. XELODA [Suspect]
     Route: 065
     Dates: end: 20100407
  3. CAMPTOSAR [Suspect]
     Route: 065
  4. OMEPRAZOLE [Concomitant]
     Dosage: FREQUENCY: 1 X 2
  5. ARTROX [Concomitant]
     Dosage: FREQUENCY: 1 X 1.
  6. CITALOPRAM HYDROBROMIDE [Concomitant]
     Dosage: FREQUENCY: 1 X 1
  7. SONATA [Concomitant]
     Dosage: FREQUENCY: NOCTE.

REACTIONS (1)
  - SIGMOIDITIS [None]
